FAERS Safety Report 9235604 (Version 1)
Quarter: 2013Q2

REPORT INFORMATION
  Report Type: Spontaneous
  Country: IL (occurrence: IL)
  Receive Date: 20130417
  Receipt Date: 20130417
  Transmission Date: 20140414
  Serious: Yes (Other)
  Sender: FDA-Public Use
  Company Number: IL-JNJFOC-20130404399

PATIENT
  Age: 47 Year
  Sex: Female

DRUGS (1)
  1. REMICADE [Suspect]
     Indication: PRODUCT USED FOR UNKNOWN INDICATION
     Dosage: 3 TO 4 YEARS AGO FROM THE DATE OF THIS REPORT
     Route: 042

REACTIONS (3)
  - Cerebrovascular accident [Unknown]
  - Psoriatic arthropathy [Unknown]
  - Influenza [Unknown]
